FAERS Safety Report 8609333-6 (Version None)
Quarter: 2012Q3

REPORT INFORMATION
  Report Type: 
  Country: None (occurrence: None)
  Receive Date: 20120821
  Receipt Date: 20120817
  Transmission Date: 20120928
  Serious: Yes (Death, Hospitalization)
  Sender: FDA-Public Use
  Company Number: PHHY2012MX071686

PATIENT
  Sex: Male

DRUGS (4)
  1. ONBREZ [Suspect]
     Indication: CHRONIC OBSTRUCTIVE PULMONARY DISEASE
     Dosage: 300 UG, DAILY
     Dates: start: 20091001
  2. SPIRIVA [Concomitant]
  3. HYPOGLYCAEMIC MEDICINE [Concomitant]
  4. SYMBICORT [Concomitant]

REACTIONS (2)
  - CHRONIC OBSTRUCTIVE PULMONARY DISEASE [None]
  - BRONCHOSPASM [None]
